FAERS Safety Report 8386503-6 (Version None)
Quarter: 2012Q2

REPORT INFORMATION
  Report Type: 
  Country: None (occurrence: None)
  Receive Date: 20120525
  Receipt Date: 20120518
  Transmission Date: 20120825
  Serious: Yes (Hospitalization, Other)
  Sender: FDA-Public Use
  Company Number: US-JNJFOC-20110802479

PATIENT
  Sex: Male

DRUGS (5)
  1. PREDNISONE TAB [Suspect]
     Indication: SKIN DISORDER
     Route: 065
     Dates: start: 20020101
  2. ZITHROMAX [Concomitant]
     Indication: BRONCHITIS
     Dates: start: 20090217, end: 20090321
  3. LEVAQUIN [Suspect]
     Indication: PNEUMONIA BACTERIAL
     Route: 048
  4. PREDNISONE TAB [Suspect]
     Indication: PAIN
     Route: 065
     Dates: start: 20020101
  5. LEVAQUIN [Suspect]
     Route: 048
     Dates: start: 20090201

REACTIONS (8)
  - OEDEMA PERIPHERAL [None]
  - NERVE INJURY [None]
  - CARPAL TUNNEL SYNDROME [None]
  - TENDON RUPTURE [None]
  - LIMB INJURY [None]
  - TENDONITIS [None]
  - TENDON INJURY [None]
  - MONONEUROPATHY [None]
